FAERS Safety Report 8884700 (Version 3)
Quarter: 2012Q4

REPORT INFORMATION
  Report Type: 
  Country: US (occurrence: US)
  Receive Date: 20121102
  Receipt Date: 20121121
  Transmission Date: 20130627
  Serious: Yes (Other)
  Sender: FDA-Public Use
  Company Number: US-PFIZER INC-2012266259

PATIENT
  Age: 73 Year
  Sex: Male
  Weight: 81.63 kg

DRUGS (1)
  1. PREPARATION H SUPPOSITORY [Suspect]
     Indication: HEMORRHOIDS
     Dosage: UNK, 1x/day
     Route: 054
     Dates: start: 201209, end: 201209

REACTIONS (2)
  - Rectal haemorrhage [Recovered/Resolved]
  - Haemorrhage [Unknown]
